FAERS Safety Report 5866883-3 (Version None)
Quarter: 2008Q3

REPORT INFORMATION
  Report Type: 
  Country: None (occurrence: None)
  Receive Date: 20080828
  Receipt Date: 20080828
  Transmission Date: 20090109
  Serious: No
  Sender: FDA-Public Use
  Company Number: None

PATIENT

DRUGS (1)
  1. BUDEPRION (TEVA) [Suspect]
     Indication: DEPRESSION
     Dosage: 300 MG DAILY ORAL 150 MG DAILY ORAL
     Route: 048
     Dates: start: 20080701, end: 20080801

REACTIONS (4)
  - ANGER [None]
  - HOSTILITY [None]
  - IRRITABILITY [None]
  - PHARMACEUTICAL PRODUCT COMPLAINT [None]
